FAERS Safety Report 6030418-5 (Version None)
Quarter: 2009Q1

REPORT INFORMATION
  Report Type: 
  Country: None (occurrence: None)
  Receive Date: 20090105
  Receipt Date: 20090105
  Transmission Date: 20090719
  Serious: Yes (Disabling, Other)
  Sender: FDA-Public Use
  Company Number: None

PATIENT
  Age: 61 Year
  Sex: Female
  Weight: 68.0396 kg

DRUGS (4)
  1. SERTRALINE [Suspect]
     Indication: ANXIETY
     Dosage: ONE DAILY PO
     Route: 048
     Dates: start: 20080906, end: 20080912
  2. SERTRALINE [Suspect]
     Indication: DEPRESSION
     Dosage: ONE DAILY PO
     Route: 048
     Dates: start: 20080906, end: 20080912
  3. SERTRALINE [Suspect]
     Indication: ANXIETY
     Dosage: ONE DAILY PO
     Route: 048
     Dates: start: 20081001, end: 20081005
  4. SERTRALINE [Suspect]
     Indication: DEPRESSION
     Dosage: ONE DAILY PO
     Route: 048
     Dates: start: 20081001, end: 20081005

REACTIONS (2)
  - DIARRHOEA [None]
  - MEDICATION ERROR [None]
